FAERS Safety Report 7956517-6 (Version None)
Quarter: 2011Q4

REPORT INFORMATION
  Report Type: 
  Country: None (occurrence: None)
  Receive Date: 20111201
  Receipt Date: 20111122
  Transmission Date: 20120403
  Serious: Yes (Hospitalization)
  Sender: FDA-Public Use
  Company Number: 1118090

PATIENT
  Age: 50 Year
  Sex: Female

DRUGS (4)
  1. PACLITAXEL [Concomitant]
  2. PAROXETINE HCL [Concomitant]
  3. CARBOPLATIN [Suspect]
     Indication: MALIGNANT PERITONEAL NEOPLASM
     Dosage: 360 MG/M^2
  4. LEVOTHYROXINE SODIUM [Concomitant]

REACTIONS (17)
  - ASCITES [None]
  - HYPOTHERMIA [None]
  - HYPOTENSION [None]
  - CONTINUOUS HAEMODIAFILTRATION [None]
  - TACHYCARDIA [None]
  - LACTIC ACIDOSIS [None]
  - NEOPLASM RECURRENCE [None]
  - HEPATIC FAILURE [None]
  - ASTHENIA [None]
  - MITOCHONDRIAL CYTOPATHY [None]
  - MALIGNANT PERITONEAL NEOPLASM [None]
  - NEUROTOXICITY [None]
  - CONFUSIONAL STATE [None]
  - TACHYPNOEA [None]
  - RENAL FAILURE ACUTE [None]
  - DYSPNOEA [None]
  - ABDOMINAL PAIN [None]
